FAERS Safety Report 15982704 (Version 2)
Quarter: 2019Q1

REPORT INFORMATION
  Report Type: Spontaneous
  Country: JP (occurrence: JP)
  Receive Date: 20190219
  Receipt Date: 20190314
  Transmission Date: 20190418
  Serious: Yes (Death, Hospitalization, Other)
  Sender: FDA-Public Use
  Company Number: JP-009507513-1902JPN001156J

PATIENT
  Age: 53 Year
  Sex: Male

DRUGS (1)
  1. KEYTRUDA [Suspect]
     Active Substance: PEMBROLIZUMAB
     Indication: NON-SMALL CELL LUNG CANCER
     Dosage: 200 MILLIGRAM, Q3W
     Route: 041
     Dates: start: 20181127, end: 20190122

REACTIONS (2)
  - Pneumothorax spontaneous [Not Recovered/Not Resolved]
  - Pneumonia bacterial [Fatal]

NARRATIVE: CASE EVENT DATE: 20190210
